FAERS Safety Report 20174580 (Version 4)
Quarter: 2022Q1

REPORT INFORMATION
  Report Type: Report from Study
  Country: AT (occurrence: AT)
  Receive Date: 20211213
  Receipt Date: 20220224
  Transmission Date: 20220423
  Serious: Yes (Other)
  Sender: FDA-Public Use
  Company Number: AT-CELLTRION INC.-2021AT016687

PATIENT

DRUGS (15)
  1. TRASTUZUMAB [Suspect]
     Active Substance: TRASTUZUMAB
     Indication: HER2 positive breast cancer
     Dosage: 462 MG 3 WEEK (MOST RECENT DOSE PRIOR TO EVENT: 28/NOV2017)
     Route: 041
     Dates: start: 20170822
  2. PACLITAXEL [Suspect]
     Active Substance: PACLITAXEL
     Indication: HER2 positive breast cancer
     Dosage: 107.73 MG 1 WEEK (MOST RECENT DOSE PRIOR TO AE- 07/NOV/2017)
     Route: 042
     Dates: start: 20170822, end: 20171107
  3. ADO-TRASTUZUMAB EMTANSINE [Suspect]
     Active Substance: ADO-TRASTUZUMAB EMTANSINE
     Indication: HER2 positive breast cancer
     Dosage: 266.14 MICROGRAM, 3 WEEK (MOST RECENT DOSE PRIOR TO AE- 23/NOV/2021)
     Route: 042
     Dates: start: 20210111
  4. LASIX [Concomitant]
     Active Substance: FUROSEMIDE
     Dosage: ONGOING = CHECKED
  5. CRESTOR [Concomitant]
     Active Substance: ROSUVASTATIN CALCIUM
     Dosage: ONGOING = CHECKED
  6. EXFORGE HCT [Concomitant]
     Active Substance: AMLODIPINE BESYLATE\HYDROCHLOROTHIAZIDE\VALSARTAN
     Dosage: ONGOING = CHECKED
  7. MAGNESIUM ASPARTATE\POTASSIUM ASPARTATE [Concomitant]
     Active Substance: MAGNESIUM ASPARTATE\POTASSIUM ASPARTATE
     Dosage: ONGOING = CHECKED
  8. METOPROLOL [Concomitant]
     Active Substance: METOPROLOL
     Dosage: ONGOING = CHECKED
  9. DIGITOXIN [Concomitant]
     Active Substance: DIGITOXIN
     Indication: Atrial fibrillation
     Dosage: ONGOING = CHECKED
     Dates: start: 20191111
  10. VALSARTAN [Concomitant]
     Active Substance: VALSARTAN
     Dosage: ONGOING = CHECKED
  11. METFORMIN [Concomitant]
     Active Substance: METFORMIN HYDROCHLORIDE
     Dosage: ONGOING = CHECKED
  12. LOVENOX [Concomitant]
     Active Substance: ENOXAPARIN SODIUM
     Dosage: ONGOING = CHECKED
     Dates: start: 20170729
  13. FUROSEMIDE SODIUM [Concomitant]
     Active Substance: FUROSEMIDE SODIUM
     Indication: Atrial fibrillation
     Dosage: ONGOING = CHECKED
     Dates: start: 20200113
  14. NOVALGIN (METAMIZOLE SODIUM) [Concomitant]
     Active Substance: METAMIZOLE SODIUM
     Indication: Atrial fibrillation
     Dosage: ONGOING = CHECKED
  15. FUROSEMIDE [Concomitant]
     Active Substance: FUROSEMIDE
     Indication: Atrial fibrillation
     Dosage: ONGOING = CHECKED
     Dates: start: 20200113

REACTIONS (2)
  - Hypokalaemia [Not Recovered/Not Resolved]
  - Thrombocytopenia [Not Recovered/Not Resolved]

NARRATIVE: CASE EVENT DATE: 20210517
